FAERS Safety Report 7030065-2 (Version None)
Quarter: 2010Q4

REPORT INFORMATION
  Report Type: 
  Country: None (occurrence: None)
  Receive Date: 20101006
  Receipt Date: 20101001
  Transmission Date: 20110411
  Serious: No
  Sender: FDA-Public Use
  Company Number: US-TEVA-250387USA

PATIENT
  Sex: Male
  Weight: 81.72 kg

DRUGS (9)
  1. AZILECT [Suspect]
     Indication: PARKINSON'S DISEASE
     Route: 048
     Dates: start: 20100901, end: 20100901
  2. PRISTIQ [Concomitant]
     Indication: DEPRESSION
  3. SINEMET [Concomitant]
     Indication: PARKINSON'S DISEASE
     Dosage: CR 50/200
  4. SINEMET [Concomitant]
     Dosage: IR 25/100
  5. PRAMIPEXOLE DIHYDROCHLORIDE [Concomitant]
     Dosage: HS
  6. TRAZODONE HCL [Concomitant]
     Dosage: HS
  7. ATORVASTATIN CALCIUM [Concomitant]
  8. MORNIFLUMATE [Concomitant]
  9. ACETYLSALICYLIC ACID SRT [Concomitant]

REACTIONS (4)
  - FEELING ABNORMAL [None]
  - INSOMNIA [None]
  - MEMORY IMPAIRMENT [None]
  - ROAD TRAFFIC ACCIDENT [None]
